FAERS Safety Report 9417799 (Version 1)
Quarter: 2013Q3

REPORT INFORMATION
  Report Type: Spontaneous
  Country: SG (occurrence: SG)
  Receive Date: 20130724
  Receipt Date: 20130724
  Transmission Date: 20140515
  Serious: Yes (Life-Threatening)
  Sender: FDA-Public Use
  Company Number: SG-GLAXOSMITHKLINE-B0910072A

PATIENT
  Age: 69 Year
  Sex: 0

DRUGS (1)
  1. VOTRIENT [Suspect]
     Indication: RENAL CELL CARCINOMA
     Dosage: 800MG PER DAY
     Route: 048
     Dates: start: 20121001, end: 20130301

REACTIONS (2)
  - Hepatitis [Unknown]
  - Blood bilirubin increased [Unknown]
